FAERS Safety Report 25226410 (Version 1)
Quarter: 2025Q2

REPORT INFORMATION
  Report Type: Spontaneous
  Country: FR (occurrence: FR)
  Receive Date: 20250422
  Receipt Date: 20250422
  Transmission Date: 20250716
  Serious: Yes (Hospitalization)
  Sender: TEVA
  Company Number: None

PATIENT
  Age: 66 Year
  Sex: Female
  Weight: 40 kg

DRUGS (2)
  1. DIAZEPAM [Suspect]
     Active Substance: DIAZEPAM
     Indication: Poisoning deliberate
     Route: 048
     Dates: start: 20250325, end: 20250325
  2. RIVOTRIL [Suspect]
     Active Substance: CLONAZEPAM
     Indication: Poisoning deliberate
     Route: 048
     Dates: start: 20250325, end: 20250325

REACTIONS (3)
  - Coma [Recovering/Resolving]
  - Rhabdomyolysis [Recovering/Resolving]
  - Poisoning deliberate [Recovering/Resolving]

NARRATIVE: CASE EVENT DATE: 20250325
